FAERS Safety Report 7098008-3 (Version None)
Quarter: 2010Q4

REPORT INFORMATION
  Report Type: 
  Country: None (occurrence: None)
  Receive Date: 20101112
  Receipt Date: 20100825
  Transmission Date: 20110411
  Serious: No
  Sender: FDA-Public Use
  Company Number: US-BAYER-201034612NA

PATIENT
  Age: 18 Year
  Sex: Female

DRUGS (1)
  1. NATAZIA [Suspect]
     Indication: MENORRHAGIA
     Route: 048
     Dates: start: 20100822

REACTIONS (2)
  - ABDOMINAL DISTENSION [None]
  - ABDOMINAL PAIN [None]
